FAERS Safety Report 10357324 (Version 2)
Quarter: 2014Q3

REPORT INFORMATION
  Report Type: Spontaneous
  Country: US (occurrence: None)
  Receive Date: 20140730
  Receipt Date: 20140813
  Transmission Date: 20150326
  Serious: Yes (Death, Hospitalization)
  Sender: FDA-Public Use
  Company Number: AMAG201400279

PATIENT
  Age: 76 Year
  Sex: Female

DRUGS (2)
  1. IRON [Concomitant]
     Active Substance: IRON
  2. FERAHEME [Suspect]
     Active Substance: FERUMOXYTOL NON-STOICHIOMETRIC MAGNETITE
     Indication: IRON DEFICIENCY
     Dosage: SINGLE, IV PUSH
     Route: 042
     Dates: start: 20140702, end: 20140702

REACTIONS (8)
  - Infusion related reaction [None]
  - Pulmonary hypertension [None]
  - Unresponsive to stimuli [None]
  - Pneumonia aspiration [None]
  - Cardio-respiratory arrest [None]
  - Septic shock [None]
  - Cardiogenic shock [None]
  - Acute myocardial infarction [None]

NARRATIVE: CASE EVENT DATE: 20140702
